FAERS Safety Report 10147170 (Version 7)
Quarter: 2016Q4

REPORT INFORMATION
  Report Type: Report from Study
  Country: ES (occurrence: ES)
  Receive Date: 20140501
  Receipt Date: 20161223
  Transmission Date: 20170206
  Serious: Yes (Death, Life-Threatening, Hospitalization)
  Sender: FDA-Public Use
  Company Number: PHHO2014ES005855

PATIENT
  Age: 55 Year
  Sex: Female
  Weight: 60 kg

DRUGS (4)
  1. TACROLIMUS. [Suspect]
     Active Substance: TACROLIMUS
     Indication: LIVER TRANSPLANT
     Route: 048
     Dates: start: 20140411, end: 20140418
  2. MYCOPHENOLATE MOFETIL. [Suspect]
     Active Substance: MYCOPHENOLATE MOFETIL
     Indication: LIVER TRANSPLANT
     Dosage: UNK
     Route: 065
     Dates: start: 20140408, end: 20140418
  3. NO TREATMENT RECEIVED [Suspect]
     Active Substance: UNSPECIFIED INGREDIENT
     Indication: LIVER TRANSPLANT
     Dosage: NO TREATMENT
     Route: 065
  4. MYCOPHENOLATE MOFETIL. [Suspect]
     Active Substance: MYCOPHENOLATE MOFETIL
     Dosage: UNK
     Route: 065
     Dates: start: 20140422

REACTIONS (6)
  - Renal failure [Fatal]
  - Sepsis [Fatal]
  - Cerebral atrophy [Recovered/Resolved with Sequelae]
  - Septic shock [Fatal]
  - Coma [Recovered/Resolved with Sequelae]
  - Osmotic demyelination syndrome [Recovered/Resolved with Sequelae]

NARRATIVE: CASE EVENT DATE: 20140415
